FAERS Safety Report 23934779 (Version 1)
Quarter: 2024Q2

REPORT INFORMATION
  Report Type: Report from Study
  Country: CA (occurrence: CA)
  Receive Date: 20240604
  Receipt Date: 20240604
  Transmission Date: 20240716
  Serious: Yes (Hospitalization, Other)
  Sender: FDA-Public Use
  Company Number: CA-ABBVIE-5722958

PATIENT
  Age: 63 Year
  Sex: Male
  Weight: 97 kg

DRUGS (5)
  1. LUPRON [Suspect]
     Active Substance: LEUPROLIDE ACETATE
     Indication: Prostate cancer
     Route: 030
     Dates: start: 20181201
  2. RABEPRAZOLE [Concomitant]
     Active Substance: RABEPRAZOLE
     Indication: Gastrooesophageal reflux disease
     Dates: start: 20240529
  3. RAMIPRIL [Concomitant]
     Active Substance: RAMIPRIL
     Indication: Hypertension
     Dates: start: 2009
  4. ENZALUTAMIDE [Concomitant]
     Active Substance: ENZALUTAMIDE
     Indication: Hormone-refractory prostate cancer
     Route: 048
     Dates: start: 202301
  5. HYDROMORPHONE HCL [Concomitant]
     Active Substance: HYDROMORPHONE HYDROCHLORIDE
     Indication: Arthritis
     Dosage: FREQUENCY TEXT: AS NEEDED
     Route: 048
     Dates: start: 2024

REACTIONS (7)
  - Hip arthroplasty [Recovering/Resolving]
  - Weight bearing difficulty [Unknown]
  - Hip arthroplasty [Unknown]
  - Arthralgia [Unknown]
  - Inguinal hernia [Unknown]
  - Osteosclerosis [Unknown]
  - Cyst [Unknown]

NARRATIVE: CASE EVENT DATE: 20240416
